FAERS Safety Report 7376389-0 (Version None)
Quarter: 2011Q1

REPORT INFORMATION
  Report Type: 
  Country: None (occurrence: None)
  Receive Date: 20110325
  Receipt Date: 20110216
  Transmission Date: 20110831
  Serious: Yes (Other)
  Sender: FDA-Public Use
  Company Number: US-BAYER-201039182NA

PATIENT
  Sex: Female
  Weight: 65 kg

DRUGS (3)
  1. YAZ [Suspect]
     Indication: CONTRACEPTION
     Dosage: UNK
     Dates: start: 20070401, end: 20080901
  2. YASMIN [Suspect]
     Indication: CONTRACEPTION
     Dosage: UNK
     Route: 048
     Dates: start: 20031101, end: 20040401
  3. YAZ [Suspect]
     Dosage: UNK
     Route: 048
     Dates: start: 20070401, end: 20090601

REACTIONS (5)
  - CHOLECYSTITIS CHRONIC [None]
  - ABDOMINAL PAIN [None]
  - MOOD ALTERED [None]
  - CHOLELITHIASIS [None]
  - DISCOMFORT [None]
